FAERS Safety Report 17369348 (Version 1)
Quarter: 2020Q1

REPORT INFORMATION
  Report Type: Spontaneous
  Country: US (occurrence: US)
  Receive Date: 20200121
  Receipt Date: 20200121
  Transmission Date: 20200409
  Serious: No
  Sender: FDA-Public Use
  Company Number: None

PATIENT

DRUGS (2)
  1. IPRATROPIUM BROMIDE. [Suspect]
     Active Substance: IPRATROPIUM BROMIDE
  2. RACEPINEPHRINE [Suspect]
     Active Substance: RACEPINEPHRINE

REACTIONS (3)
  - Product storage error [None]
  - Product container issue [None]
  - Product packaging confusion [None]
